FAERS Safety Report 13348971 (Version 1)
Quarter: 2017Q1

REPORT INFORMATION
  Report Type: Spontaneous
  Country: US (occurrence: US)
  Receive Date: 20170320
  Receipt Date: 20170320
  Transmission Date: 20170428
  Serious: Yes (Hospitalization, Other)
  Sender: FDA-Public Use
  Company Number: US-JNJFOC-20170310165

PATIENT
  Age: 5 Decade
  Sex: Male

DRUGS (3)
  1. GUAIFENESIN/DEXTROMETHORPHAN [Concomitant]
     Indication: COUGH
     Route: 065
  2. IBUPROFEN. [Suspect]
     Active Substance: IBUPROFEN
     Route: 065
  3. IBUPROFEN. [Suspect]
     Active Substance: IBUPROFEN
     Indication: COUGH
     Route: 065

REACTIONS (3)
  - Skin hyperpigmentation [Not Recovered/Not Resolved]
  - Fixed drug eruption [Recovered/Resolved with Sequelae]
  - Product use issue [Unknown]
